FAERS Safety Report 24291150 (Version 1)
Quarter: 2024Q3

REPORT INFORMATION
  Report Type: Report from Study
  Country: CA (occurrence: CA)
  Receive Date: 20240906
  Receipt Date: 20240906
  Transmission Date: 20241017
  Serious: Yes (Hospitalization)
  Sender: PFIZER
  Company Number: CA-PFIZER INC-202400250722

PATIENT
  Age: 57 Year
  Sex: Female
  Weight: 71 kg

DRUGS (3)
  1. BEVACIZUMAB [Suspect]
     Active Substance: BEVACIZUMAB
     Indication: Hereditary haemorrhagic telangiectasia
     Dosage: 365 MG EVERY 2 WEEKS
     Route: 042
  2. BEVACIZUMAB [Suspect]
     Active Substance: BEVACIZUMAB
     Dosage: 365 MG, MONTHLY
     Route: 042
  3. BEVACIZUMAB [Suspect]
     Active Substance: BEVACIZUMAB
     Indication: Hereditary haemorrhagic telangiectasia
     Dosage: 365 MG EVERY 2 WEEKS
     Route: 042

REACTIONS (5)
  - Blood pressure systolic increased [Recovered/Resolved]
  - Haemoglobin decreased [Recovered/Resolved]
  - Heart rate increased [Recovered/Resolved]
  - Transfusion reaction [Recovered/Resolved]
  - Weight decreased [Recovered/Resolved]
